FAERS Safety Report 8559624-2 (Version None)
Quarter: 2012Q3

REPORT INFORMATION
  Report Type: 
  Country: None (occurrence: None)
  Receive Date: 20120802
  Receipt Date: 20120727
  Transmission Date: 20120928
  Serious: Yes (Hospitalization)
  Sender: FDA-Public Use
  Company Number: BE-PFIZER INC-2012183946

PATIENT
  Sex: Male
  Weight: 98 kg

DRUGS (9)
  1. GENOTROPIN [Suspect]
     Indication: HYPOPITUITARISM
     Dosage: 0.5 MG/DAY, 7 INJECTIONS/WEEK
     Route: 058
     Dates: start: 20040818
  2. TESTOSTERONE PHENYL PROPIONATE INJ [Concomitant]
     Indication: BLOOD LUTEINISING HORMONE DECREASED
     Dosage: UNK
     Dates: start: 20040127
  3. CABERGOLINE [Concomitant]
     Indication: HYPERPROLACTINAEMIA
     Dosage: UNK
     Dates: start: 20031229
  4. TESTOSTERONE PHENYL PROPIONATE INJ [Concomitant]
     Indication: HYPOGONADISM MALE
  5. BUMETANIDE [Concomitant]
     Indication: ESSENTIAL HYPERTENSION
     Dosage: UNK
     Dates: start: 20040818
  6. TESTOSTERONE PHENYL PROPIONATE INJ [Concomitant]
     Indication: BLOOD FOLLICLE STIMULATING HORMONE DECREASED
  7. HYDROCORTISONE [Concomitant]
     Indication: BLOOD CORTICOTROPHIN DECREASED
     Dosage: UNK
     Dates: start: 20040818
  8. ELTHYRONE [Concomitant]
     Indication: PRIMARY HYPOTHYROIDISM
  9. ELTHYRONE [Concomitant]
     Indication: BLOOD THYROID STIMULATING HORMONE DECREASED
     Dosage: UNK
     Dates: start: 20040127

REACTIONS (1)
  - COLON CANCER [None]
